FAERS Safety Report 23435407 (Version 2)
Quarter: 2024Q1

REPORT INFORMATION
  Report Type: Spontaneous
  Country: US (occurrence: US)
  Receive Date: 20240123
  Receipt Date: 20240319
  Transmission Date: 20240410
  Serious: Yes (Other)
  Sender: FDA-Public Use
  Company Number: US-MARINUS PHARMACEUTICALS, INC.-MAR2024000009

PATIENT

DRUGS (4)
  1. ZTALMY [Suspect]
     Active Substance: GANAXOLONE
     Indication: Seizure
     Dosage: 2.9 MILLILITER, TID
     Route: 048
     Dates: start: 20231116
  2. ZTALMY [Suspect]
     Active Substance: GANAXOLONE
     Dosage: 5.4 MILLILITER, TID
     Route: 048
  3. ZTALMY [Suspect]
     Active Substance: GANAXOLONE
     Dosage: 7.8 MILLILITER, TID
     Route: 048
  4. ZTALMY [Suspect]
     Active Substance: GANAXOLONE
     Dosage: 10.2 MILLILITER, TID
     Route: 048

REACTIONS (4)
  - Change in seizure presentation [Unknown]
  - Pain [Unknown]
  - Fatigue [Unknown]
  - Drug ineffective [Unknown]

NARRATIVE: CASE EVENT DATE: 20240110
